FAERS Safety Report 5493579-2 (Version None)
Quarter: 2007Q4

REPORT INFORMATION
  Report Type: 
  Country: None (occurrence: None)
  Receive Date: 20071023
  Receipt Date: 20071015
  Transmission Date: 20080405
  Serious: Yes (Hospitalization)
  Sender: FDA-Public Use
  Company Number: FR-AVENTIS-200713292FR

PATIENT
  Age: 93 Year
  Sex: Female

DRUGS (5)
  1. OFLOCET                            /00731801/ [Suspect]
     Route: 048
     Dates: start: 20070811, end: 20070824
  2. LASIX [Suspect]
     Route: 048
     Dates: start: 20070820, end: 20070824
  3. AUGMENTIN '125' [Suspect]
     Route: 048
     Dates: start: 20070810, end: 20070824
  4. IMOVANE [Concomitant]
     Indication: SLEEP DISORDER
     Route: 048
     Dates: start: 20070817, end: 20070818
  5. IMOVANE [Concomitant]
     Route: 048
     Dates: start: 20070822, end: 20070822

REACTIONS (1)
  - ACUTE GENERALISED EXANTHEMATOUS PUSTULOSIS [None]
